FAERS Safety Report 7207158-X (Version None)
Quarter: 2011Q1

REPORT INFORMATION
  Report Type: 
  Country: None (occurrence: None)
  Receive Date: 20110103
  Receipt Date: 20101229
  Transmission Date: 20110831
  Serious: Yes (Death, Life-Threatening)
  Sender: FDA-Public Use
  Company Number: JP-ROCHE-712092

PATIENT
  Sex: Female

DRUGS (3)
  1. TOPOTECAN [Concomitant]
     Dosage: NOTE: DOSAGE IS UNCERTAIN
     Route: 041
     Dates: start: 20090608, end: 20090831
  2. AVASTIN [Suspect]
     Indication: BRAIN STEM GLIOMA
     Dosage: NOTE: DOSAGE IS UNCERTAIN
     Route: 041
     Dates: start: 20090608, end: 20090831
  3. TEMODAL [Suspect]
     Indication: BRAIN STEM GLIOMA
     Route: 048
     Dates: start: 20090119, end: 20090808

REACTIONS (4)
  - DISEASE PROGRESSION [None]
  - HYPERTENSION [None]
  - POSTERIOR REVERSIBLE ENCEPHALOPATHY SYNDROME [None]
  - LYMPHOCYTE COUNT DECREASED [None]
